FAERS Safety Report 8880531 (Version 3)
Quarter: 2015Q1

REPORT INFORMATION
  Report Type: Spontaneous
  Country: US (occurrence: US)
  Receive Date: 20121031
  Receipt Date: 20150206
  Transmission Date: 20150721
  Serious: Yes (Hospitalization, Other)
  Sender: FDA-Public Use
  Company Number: US-ASTRAZENECA-2012SE80334

PATIENT
  Age: 65 Year
  Sex: Female
  Weight: 63.5 kg

DRUGS (2)
  1. NEXIUM [Suspect]
     Active Substance: ESOMEPRAZOLE MAGNESIUM
     Indication: GASTROOESOPHAGEAL REFLUX DISEASE
     Route: 048
     Dates: start: 2004
  2. NEXIUM [Suspect]
     Active Substance: ESOMEPRAZOLE MAGNESIUM
     Indication: GASTROOESOPHAGEAL REFLUX DISEASE
     Route: 048

REACTIONS (8)
  - Intentional product misuse [Not Recovered/Not Resolved]
  - Hip fracture [Unknown]
  - Visual impairment [Unknown]
  - Fall [Unknown]
  - Memory impairment [Not Recovered/Not Resolved]
  - Body height decreased [Not Recovered/Not Resolved]
  - Cerebrovascular accident [Recovered/Resolved with Sequelae]
  - Upper limb fracture [Unknown]

NARRATIVE: CASE EVENT DATE: 2004
